FAERS Safety Report 6161336-X (Version None)
Quarter: 2009Q2

REPORT INFORMATION
  Report Type: 
  Country: None (occurrence: None)
  Receive Date: 20090420
  Receipt Date: 20090420
  Transmission Date: 20091009
  Serious: Yes (Life-Threatening, Hospitalization)
  Sender: FDA-Public Use
  Company Number: None

PATIENT
  Age: 25 Year
  Sex: Female
  Weight: 81.6475 kg

DRUGS (10)
  1. TYLENOL (CAPLET) [Suspect]
     Indication: INSOMNIA
     Dosage: 2 PILLS AS DIRECTED PO (DURATION: 2 MONTHS OFF AND ON)
     Route: 048
     Dates: start: 20041110, end: 20050115
  2. TYLENOL (CAPLET) [Suspect]
     Indication: MALAISE
     Dosage: 2 PILLS AS DIRECTED PO (DURATION: 2 MONTHS OFF AND ON)
     Route: 048
     Dates: start: 20041110, end: 20050115
  3. WELLBUTRIN [Concomitant]
  4. RISPERDAL [Concomitant]
  5. SYMBYAX [Concomitant]
  6. PROZAC [Concomitant]
  7. ZYPREXA [Concomitant]
  8. DARVOCET [Concomitant]
  9. ATARAX [Concomitant]
  10. AMOXICILLIN [Concomitant]

REACTIONS (18)
  - ABDOMINAL PAIN UPPER [None]
  - APPARENT DEATH [None]
  - DEPRESSED LEVEL OF CONSCIOUSNESS [None]
  - DEPRESSION [None]
  - DRUG HYPERSENSITIVITY [None]
  - HALLUCINATION [None]
  - HALLUCINATION, AUDITORY [None]
  - INJURY [None]
  - INSOMNIA [None]
  - MEDICATION ERROR [None]
  - MENTAL DISORDER [None]
  - NIGHTMARE [None]
  - OVERDOSE [None]
  - POST-TRAUMATIC STRESS DISORDER [None]
  - SLEEP APNOEA SYNDROME [None]
  - SLEEP PARALYSIS [None]
  - SUICIDE ATTEMPT [None]
  - VOMITING [None]
